FAERS Safety Report 18040469 (Version 1)
Quarter: 2020Q3

REPORT INFORMATION
  Report Type: Spontaneous
  Country: CA (occurrence: CA)
  Receive Date: 20200717
  Receipt Date: 20200717
  Transmission Date: 20201103
  Serious: Yes (Other)
  Sender: FDA-Public Use
  Company Number: CA-FRESENIUS KABI-FK202007287

PATIENT
  Age: 14 Year
  Sex: Male

DRUGS (4)
  1. TACROLIMUS. [Suspect]
     Active Substance: TACROLIMUS
     Indication: DERMATITIS ATOPIC
     Dosage: UNKNOWN
     Route: 065
  2. CEFAZOLIN [Concomitant]
     Active Substance: CEFAZOLIN
     Indication: TOXIC SHOCK SYNDROME STAPHYLOCOCCAL
     Dosage: UNKNOWN
     Route: 042
  3. CLINDAMYCIN. [Suspect]
     Active Substance: CLINDAMYCIN
     Indication: TOXIC SHOCK SYNDROME STAPHYLOCOCCAL
     Dosage: UNKNOWN
     Route: 042
  4. DESOXIMETASONE. [Concomitant]
     Active Substance: DESOXIMETASONE
     Indication: DERMATITIS ATOPIC
     Dosage: UNKNOWN
     Route: 065

REACTIONS (1)
  - Anaphylactic reaction [Recovered/Resolved]
